FAERS Safety Report 8418479-7 (Version None)
Quarter: 2012Q2

REPORT INFORMATION
  Report Type: 
  Country: None (occurrence: None)
  Receive Date: 20120607
  Receipt Date: 20120530
  Transmission Date: 20120825
  Serious: Yes (Hospitalization)
  Sender: FDA-Public Use
  Company Number: JP-SANOFI-AVENTIS-2012SA039307

PATIENT
  Age: 78 Year
  Sex: Male

DRUGS (4)
  1. PLAVIX [Suspect]
     Indication: PROPHYLAXIS
     Route: 048
     Dates: start: 20100701, end: 20120509
  2. LANSOPRAZOLE [Concomitant]
     Indication: GASTRIC ULCER
  3. PROMAC /JPN/ [Suspect]
     Indication: GASTRIC ULCER
     Route: 048
  4. OPALMON [Suspect]
     Indication: PAIN PROPHYLAXIS
     Route: 048
     Dates: start: 20120130, end: 20120509

REACTIONS (3)
  - BLOOD CREATINE PHOSPHOKINASE INCREASED [None]
  - RHABDOMYOLYSIS [None]
  - ASTHENIA [None]
